FAERS Safety Report 9197940 (Version 1)
Quarter: 2013Q1

REPORT INFORMATION
  Report Type: Report from Study
  Country: US (occurrence: US)
  Receive Date: 20130328
  Receipt Date: 20130328
  Transmission Date: 20140127
  Serious: Yes (Hospitalization, Other)
  Sender: FDA-Public Use
  Company Number: US-ABBOTT-13P-163-1065480-00

PATIENT
  Sex: Female
  Weight: 59.02 kg

DRUGS (4)
  1. HUMIRA [Suspect]
     Indication: RHEUMATOID ARTHRITIS
     Dates: start: 2003, end: 201110
  2. IBUPROFEN [Suspect]
     Indication: RHEUMATOID ARTHRITIS
  3. LIPITOR [Concomitant]
     Indication: HYPERLIPIDAEMIA
  4. METFORMIN [Concomitant]
     Indication: DIABETES MELLITUS

REACTIONS (8)
  - Hallucination [Recovered/Resolved]
  - Weight decreased [Recovered/Resolved]
  - Nephrolithiasis [Recovered/Resolved]
  - Renal cancer [Recovered/Resolved]
  - Vomiting [Recovered/Resolved]
  - Nephrolithiasis [Not Recovered/Not Resolved]
  - Injection site pain [Recovered/Resolved]
  - Urinary tract infection [Recovered/Resolved]
